FAERS Safety Report 8056574-5 (Version None)
Quarter: 2012Q1

REPORT INFORMATION
  Report Type: 
  Country: None (occurrence: None)
  Receive Date: 20120119
  Receipt Date: 20110810
  Transmission Date: 20120608
  Serious: Yes (Other)
  Sender: FDA-Public Use
  Company Number: PHHY2011AU73821

PATIENT

DRUGS (1)
  1. VENLAFAXINE [Suspect]
     Dosage: UNK UKN, UNK

REACTIONS (2)
  - OVERDOSE [None]
  - STRESS CARDIOMYOPATHY [None]
